FAERS Safety Report 12905933 (Version 1)
Quarter: 2016Q4

REPORT INFORMATION
  Report Type: Spontaneous
  Country: US (occurrence: US)
  Receive Date: 20161102
  Receipt Date: 20161102
  Transmission Date: 20170207
  Serious: Yes (Life-Threatening, Disabling)
  Sender: FDA-Public Use
  Company Number: None

PATIENT
  Age: 56 Year
  Sex: Female
  Weight: 70.31 kg

DRUGS (1)
  1. LEVOFLOXACIN 750 MG TABLETS [Suspect]
     Active Substance: LEVOFLOXACIN
     Indication: SINUSITIS
     Route: 048
     Dates: start: 20160929, end: 20161005

REACTIONS (3)
  - Tendonitis [None]
  - Neuropathy peripheral [None]
  - Chest pain [None]

NARRATIVE: CASE EVENT DATE: 20161001
